FAERS Safety Report 5742898-0 (Version None)
Quarter: 2008Q2

REPORT INFORMATION
  Report Type: 
  Country: None (occurrence: None)
  Receive Date: 20080515
  Receipt Date: 20080515
  Transmission Date: 20081010
  Serious: Yes (Other)
  Sender: FDA-Public Use
  Company Number: None

PATIENT
  Sex: Male
  Weight: 71.5 kg

DRUGS (2)
  1. DILAUDID-HP [Suspect]
     Indication: CANCER PAIN
     Dosage: 53 MG/HR CONT INFUSION IV
     Route: 042
     Dates: start: 20080208, end: 20080326
  2. DILAUDID-HP [Suspect]
     Indication: CANCER PAIN
     Dosage: 53 MG/HR CONT INFUSION IV
     Route: 042
     Dates: start: 20080208, end: 20080326

REACTIONS (4)
  - CANCER PAIN [None]
  - CONDITION AGGRAVATED [None]
  - INADEQUATE ANALGESIA [None]
  - PHARMACEUTICAL PRODUCT COMPLAINT [None]
